FAERS Safety Report 6705215-5 (Version None)
Quarter: 2010Q2

REPORT INFORMATION
  Report Type: 
  Country: None (occurrence: None)
  Receive Date: 20100430
  Receipt Date: 20100205
  Transmission Date: 20101027
  Serious: No
  Sender: FDA-Public Use
  Company Number: US-ASTRAZENECA-2010SE05437

PATIENT
  Age: 62 Year
  Sex: Male
  Weight: 102.1 kg

DRUGS (5)
  1. NEXIUM [Suspect]
     Indication: GASTROOESOPHAGEAL REFLUX DISEASE
     Route: 048
     Dates: start: 20100203
  2. DESICCANT [Suspect]
  3. LIPITOR [Concomitant]
  4. LEXAPRO [Concomitant]
  5. ATIVAN [Concomitant]

REACTIONS (2)
  - CHEMICAL POISONING [None]
  - DEHYDRATION [None]
